FAERS Safety Report 7231440-3 (Version None)
Quarter: 2011Q1

REPORT INFORMATION
  Report Type: 
  Country: None (occurrence: None)
  Receive Date: 20110118
  Receipt Date: 20110117
  Transmission Date: 20110831
  Serious: No
  Sender: FDA-Public Use
  Company Number: JP-PFIZER INC-2009254398

PATIENT
  Age: 60 Year
  Sex: Male
  Weight: 41 kg

DRUGS (4)
  1. RIFAMPICIN [Concomitant]
     Indication: MYCOBACTERIAL INFECTION
     Dosage: UNK
  2. CLARITHROMYCIN [Concomitant]
     Indication: MYCOBACTERIAL INFECTION
     Dosage: UNK
     Route: 048
  3. RIFABUTIN [Suspect]
     Dosage: UNK
     Dates: start: 20090427, end: 20090706
  4. ESANBUTOL [Concomitant]
     Dosage: UNK
     Route: 048

REACTIONS (1)
  - VISION BLURRED [None]
